FAERS Safety Report 7161903-0 (Version None)
Quarter: 2010Q4

REPORT INFORMATION
  Report Type: 
  Country: None (occurrence: None)
  Receive Date: 20101215
  Receipt Date: 20100716
  Transmission Date: 20110411
  Serious: Yes (Other)
  Sender: FDA-Public Use
  Company Number: AU-PFIZER INC-2010089904

PATIENT
  Age: 70 Year
  Sex: Female

DRUGS (3)
  1. LYRICA [Suspect]
     Indication: NEURALGIA
     Dosage: 150 MG, 2X/DAY
     Route: 048
  2. OXYCONTIN [Concomitant]
     Indication: NEURALGIA
     Dosage: UNK
  3. OXYCODONE [Concomitant]
     Indication: NEURALGIA
     Dosage: UNK

REACTIONS (3)
  - HYPONATRAEMIA [None]
  - MALAISE [None]
  - TARSAL TUNNEL SYNDROME [None]
